FAERS Safety Report 20194748 (Version 1)
Quarter: 2021Q4

REPORT INFORMATION
  Report Type: Spontaneous
  Country: MY (occurrence: MY)
  Receive Date: 20211216
  Receipt Date: 20211216
  Transmission Date: 20220303
  Serious: Yes (Other)
  Sender: FDA-Public Use
  Company Number: MY-009507513-2112MYS005677

PATIENT
  Age: 54 Year
  Sex: Female

DRUGS (1)
  1. KEYTRUDA [Suspect]
     Active Substance: PEMBROLIZUMAB
     Indication: Leiomyosarcoma
     Dosage: 200 MILLIGRAM, UNK

REACTIONS (3)
  - Adrenal insufficiency [Recovered/Resolved]
  - Hypoglycaemia [Recovered/Resolved]
  - Hypercalcaemia [Recovered/Resolved]
